FAERS Safety Report 12633133 (Version 1)
Quarter: 2016Q3

REPORT INFORMATION
  Report Type: Spontaneous
  Country: US (occurrence: None)
  Receive Date: 20160808
  Receipt Date: 20160808
  Transmission Date: 20161109
  Serious: Yes (Other)
  Sender: FDA-Public Use
  Company Number: None

PATIENT
  Age: 36 Year
  Sex: Female
  Weight: 73.94 kg

DRUGS (5)
  1. VYVANSE [Concomitant]
     Active Substance: LISDEXAMFETAMINE DIMESYLATE
  2. ALIVE [Concomitant]
  3. SUDIFED [Concomitant]
  4. PROZAC [Concomitant]
     Active Substance: FLUOXETINE HYDROCHLORIDE
  5. PARAGARD T 380A [Suspect]
     Active Substance: COPPER
     Dates: end: 20160806

REACTIONS (9)
  - Constipation [None]
  - Device toxicity [None]
  - Menorrhagia [None]
  - Vaginal discharge [None]
  - Anger [None]
  - Back pain [None]
  - Headache [None]
  - Abdominal pain lower [None]
  - Pelvic inflammatory disease [None]

NARRATIVE: CASE EVENT DATE: 20160802
